FAERS Safety Report 9550647 (Version 1)
Quarter: 2013Q3

REPORT INFORMATION
  Report Type: Spontaneous
  Country: US (occurrence: US)
  Receive Date: 20130924
  Receipt Date: 20130924
  Transmission Date: 20140515
  Serious: No
  Sender: FDA-Public Use
  Company Number: US-SANOFI-AVENTIS-2013SA043294

PATIENT
  Sex: Male

DRUGS (2)
  1. AUBAGIO [Suspect]
     Indication: PRODUCT USED FOR UNKNOWN INDICATION
     Route: 048
  2. ANTIBIOTICS [Concomitant]

REACTIONS (7)
  - Oropharyngeal pain [Unknown]
  - Ear infection [Unknown]
  - Diarrhoea [Unknown]
  - Multiple sclerosis relapse [Unknown]
  - Headache [Unknown]
  - Sinusitis [Unknown]
  - Hypoaesthesia [Unknown]
